FAERS Safety Report 7785949-4 (Version None)
Quarter: 2011Q3

REPORT INFORMATION
  Report Type: 
  Country: None (occurrence: None)
  Receive Date: 20110929
  Receipt Date: 20110921
  Transmission Date: 20111222
  Serious: Yes (Life-Threatening, Hospitalization)
  Sender: FDA-Public Use
  Company Number: CA-MILLENNIUM PHARMACEUTICALS, INC.-2011-04357

PATIENT

DRUGS (3)
  1. CYCLOPHOSPHAMIDE [Concomitant]
     Route: 048
  2. DEXAMETHASONE [Concomitant]
     Route: 065
  3. VELCADE [Suspect]
     Indication: MULTIPLE MYELOMA
     Dosage: UNK
     Route: 065
     Dates: start: 20110829, end: 20110830

REACTIONS (2)
  - MYOCARDIAL INFARCTION [None]
  - TOOTH REPAIR [None]
